FAERS Safety Report 7799445-1 (Version None)
Quarter: 2011Q4

REPORT INFORMATION
  Report Type: 
  Country: None (occurrence: None)
  Receive Date: 20111006
  Receipt Date: 20110930
  Transmission Date: 20120403
  Serious: Yes (Death, Other)
  Sender: FDA-Public Use
  Company Number: JP-PFIZER INC-2011204706

PATIENT
  Age: 72 Year
  Sex: Male

DRUGS (1)
  1. SUTENT [Suspect]
     Indication: GASTROINTESTINAL STROMAL TUMOUR

REACTIONS (4)
  - DISEASE PROGRESSION [None]
  - PRIMARY HYPOTHYROIDISM [None]
  - THYROID ATROPHY [None]
  - GASTROINTESTINAL STROMAL TUMOUR [None]
